FAERS Safety Report 7247359-8 (Version None)
Quarter: 2011Q1

REPORT INFORMATION
  Report Type: 
  Country: None (occurrence: None)
  Receive Date: 20110127
  Receipt Date: 20110112
  Transmission Date: 20110831
  Serious: Yes (Hospitalization, Other)
  Sender: FDA-Public Use
  Company Number: PHHY2011US00724

PATIENT
  Sex: Female
  Weight: 105.31 kg

DRUGS (6)
  1. ASA [Concomitant]
  2. VERALIPRAL [Concomitant]
     Indication: HYPERTENSION
     Route: 048
  3. RECLAST [Suspect]
     Indication: OSTEOPOROSIS
     Dosage: 5 MG, ONCE YEARLY
     Route: 042
     Dates: start: 20110103
  4. OMEPRAZOLE [Suspect]
     Indication: GASTROOESOPHAGEAL REFLUX DISEASE
     Dosage: 20 MG, UNK
     Route: 048
  5. CALCIUM [Concomitant]
  6. VITAMIN D [Concomitant]

REACTIONS (7)
  - WHEELCHAIR USER [None]
  - MYALGIA [None]
  - CHILLS [None]
  - BACK PAIN [None]
  - GAIT DISTURBANCE [None]
  - ASTHENIA [None]
  - PAIN [None]
